FAERS Safety Report 16715071 (Version 1)
Quarter: 2019Q3

REPORT INFORMATION
  Report Type: Spontaneous
  Country: US (occurrence: US)
  Receive Date: 20190819
  Receipt Date: 20190819
  Transmission Date: 20191005
  Serious: No
  Sender: FDA-Public Use
  Company Number: US-PFIZER INC-2019348248

PATIENT
  Sex: Male

DRUGS (5)
  1. FUROSEMIDE. [Suspect]
     Active Substance: FUROSEMIDE
     Dosage: 5 MG, DAILY (EVERYDAY)
  2. METOPROLOL TARTRATE. [Suspect]
     Active Substance: METOPROLOL TARTRATE
     Dosage: UNK UNK, DAILY (EVERYDAY)
  3. ADVIL [Suspect]
     Active Substance: IBUPROFEN
     Dosage: UNK UNK, DAILY (EVERYDAY)
  4. BABY ASPIRIN [Suspect]
     Active Substance: ASPIRIN
     Dosage: UNK UNK, DAILY (EVERYDAY)
  5. ATORVASTATIN CALCIUM. [Suspect]
     Active Substance: ATORVASTATIN CALCIUM
     Dosage: UNK UNK, DAILY (EVERYDAY)

REACTIONS (1)
  - Pain [Unknown]
